FAERS Safety Report 7644450-9 (Version None)
Quarter: 2011Q3

REPORT INFORMATION
  Report Type: 
  Country: None (occurrence: None)
  Receive Date: 20110729
  Receipt Date: 20110725
  Transmission Date: 20111222
  Serious: Yes (Hospitalization, Disabling, Other)
  Sender: FDA-Public Use
  Company Number: BR-ROCHE-781777

PATIENT
  Age: 18 Year
  Sex: Male

DRUGS (1)
  1. ISOTRETINOIN [Suspect]
     Indication: ACNE
     Dosage: FREQUENCY REPORTED AS: 40 MG/DAY
     Route: 048
     Dates: start: 20110201, end: 20110401

REACTIONS (5)
  - BACK PAIN [None]
  - PARALYSIS FLACCID [None]
  - ABASIA [None]
  - RASH PUSTULAR [None]
  - LEUKOCYTOSIS [None]
